FAERS Safety Report 24542603 (Version 1)
Quarter: 2024Q4

REPORT INFORMATION
  Report Type: Spontaneous
  Country: NL (occurrence: NL)
  Receive Date: 20241024
  Receipt Date: 20241024
  Transmission Date: 20250115
  Serious: Yes (Hospitalization)
  Sender: ACCORD
  Company Number: None

PATIENT
  Age: 60 Year
  Sex: Male
  Weight: 95 kg

DRUGS (13)
  1. METHOTREXATE [Suspect]
     Active Substance: METHOTREXATE
     Indication: Neurosarcoidosis
     Dosage: 0,2ML (10MG), SOLUTION FOR INJECTION 50 MG/ML
     Dates: start: 20220202, end: 20240223
  2. ALPRAZOLAM [Concomitant]
     Active Substance: ALPRAZOLAM
     Dosage: MODIFIED-RELEASE TABLET, 0.5 MG (MILLIGRAM)
  3. BEZAFIBRATE [Concomitant]
     Active Substance: BEZAFIBRATE
     Dosage: MODIFIED-RELEASE TABLET, 400 MG
  4. CETIRIZINE [Concomitant]
     Active Substance: CETIRIZINE HYDROCHLORIDE
     Dosage: TABLET, 10 MG
  5. FUROSEMIDE [Concomitant]
     Active Substance: FUROSEMIDE
     Dosage: TABLET, 40 MG
  6. LACTULOSE [Concomitant]
     Active Substance: LACTULOSE
     Dosage: 670 MG/ML,  LAXATIVE ORAL SOLUTION HTP LACTULOSE SYRUP 667 MG/M
  7. ACETAMINOPHEN [Concomitant]
     Active Substance: ACETAMINOPHEN
     Dosage: CAPSULE, 500 MG
  8. MAGNESIUM HYDROXIDE [Concomitant]
     Active Substance: MAGNESIUM HYDROXIDE
     Dosage: CHEWABLE TABLET, 724 MG
  9. SPIRONOLACTONE [Concomitant]
     Active Substance: SPIRONOLACTONE
     Dosage: TABLET, 50 MG
  10. XANAX [Concomitant]
     Active Substance: ALPRAZOLAM
     Dosage: MODIFIED-RELEASE TABLET, 0.5 MG
  11. RIFAXIMIN [Concomitant]
     Active Substance: RIFAXIMIN
     Dosage: TABLET, 550 MG
  12. TEMAZEPAM [Concomitant]
     Active Substance: TEMAZEPAM
     Dosage: CAPSULE, 10 MG
  13. CLOBETASOL [Concomitant]
     Active Substance: CLOBETASOL
     Dosage: CREAM, 0.5 MG/G

REACTIONS (2)
  - Hepatic cirrhosis [Not Recovered/Not Resolved]
  - Hepatic encephalopathy [Not Recovered/Not Resolved]
